FAERS Safety Report 8331492-3 (Version None)
Quarter: 2012Q2

REPORT INFORMATION
  Report Type: 
  Country: None (occurrence: None)
  Receive Date: 20120502
  Receipt Date: 20120417
  Transmission Date: 20120825
  Serious: No
  Sender: FDA-Public Use
  Company Number: US-AMGEN-USASP2012024562

PATIENT
  Age: 71 Year
  Sex: Female

DRUGS (1)
  1. ENBREL [Suspect]
     Indication: RHEUMATOID ARTHRITIS
     Dosage: 25 MG, QWK
     Dates: start: 20120229

REACTIONS (5)
  - ABDOMINAL DISTENSION [None]
  - WEIGHT INCREASED [None]
  - INCREASED APPETITE [None]
  - FATIGUE [None]
  - FEELING JITTERY [None]
